FAERS Safety Report 9477059 (Version 1)
Quarter: 2013Q3

REPORT INFORMATION
  Report Type: Spontaneous
  Country: DE (occurrence: DE)
  Receive Date: 20130826
  Receipt Date: 20130826
  Transmission Date: 20140515
  Serious: Yes (Other)
  Sender: FDA-Public Use
  Company Number: PHHY2013DE091650

PATIENT
  Sex: Male

DRUGS (1)
  1. RITALINE [Suspect]
     Dosage: 10 MG, UNK
     Dates: start: 20130810

REACTIONS (1)
  - Breast swelling [Unknown]
